FAERS Safety Report 20136784 (Version 1)
Quarter: 2021Q4

REPORT INFORMATION
  Report Type: Report from Study
  Country: CA (occurrence: CA)
  Receive Date: 20211201
  Receipt Date: 20211201
  Transmission Date: 20220303
  Serious: Yes (Hospitalization)
  Sender: FDA-Public Use
  Company Number: CA-MYLANLABS-2021M1089423

PATIENT
  Age: 94 Year
  Sex: Female

DRUGS (1)
  1. HULIO [Suspect]
     Active Substance: ADALIMUMAB-FKJP
     Indication: Rheumatoid arthritis
     Dosage: UNK

REACTIONS (2)
  - Hospitalisation [Unknown]
  - Product dose omission issue [Unknown]

NARRATIVE: CASE EVENT DATE: 20211123
